FAERS Safety Report 13468572 (Version 4)
Quarter: 2017Q2

REPORT INFORMATION
  Report Type: Spontaneous
  Country: GB (occurrence: GB)
  Receive Date: 20170421
  Receipt Date: 20170615
  Transmission Date: 20170830
  Serious: Yes (Hospitalization, Other)
  Sender: FDA-Public Use
  Company Number: GB-GUERBET-GB-20170030

PATIENT
  Age: 50 Year
  Sex: Female

DRUGS (1)
  1. OPTIRAY [Suspect]
     Active Substance: IOVERSOL
     Indication: COMPUTERISED TOMOGRAM
     Route: 042
     Dates: start: 20170410, end: 20170410

REACTIONS (6)
  - Rash [Unknown]
  - Feeling cold [Unknown]
  - Respiratory rate decreased [Unknown]
  - Pharyngeal paraesthesia [Unknown]
  - Chills [Unknown]
  - Hypersensitivity [Unknown]

NARRATIVE: CASE EVENT DATE: 20170410
